FAERS Safety Report 9227238 (Version 17)
Quarter: 2016Q3

REPORT INFORMATION
  Report Type: Report from Study
  Country: US (occurrence: US)
  Receive Date: 20130412
  Receipt Date: 20160909
  Transmission Date: 20161109
  Serious: Yes (Other)
  Sender: FDA-Public Use
  Company Number: PHEH2013US007504

PATIENT
  Age: 63 Year
  Sex: Female

DRUGS (3)
  1. BACLOFEN. [Concomitant]
     Active Substance: BACLOFEN
     Indication: PRODUCT USED FOR UNKNOWN INDICATION
     Route: 065
  2. NEURONTIN [Concomitant]
     Active Substance: GABAPENTIN
     Indication: PRODUCT USED FOR UNKNOWN INDICATION
     Route: 065
  3. GILENYA [Suspect]
     Active Substance: FINGOLIMOD HYDROCHLORIDE
     Indication: MULTIPLE SCLEROSIS
     Dosage: 0.5 MG, QD
     Route: 048
     Dates: start: 20130328

REACTIONS (30)
  - Mental impairment [Unknown]
  - Malaise [Unknown]
  - Pain in extremity [Recovering/Resolving]
  - Visual impairment [Recovered/Resolved]
  - Feeling of body temperature change [Unknown]
  - Muscular weakness [Unknown]
  - Multiple sclerosis [Unknown]
  - Fall [Unknown]
  - Musculoskeletal stiffness [Recovering/Resolving]
  - Photophobia [Unknown]
  - Panic reaction [Unknown]
  - Fatigue [Recovering/Resolving]
  - Diarrhoea [Unknown]
  - Dysuria [Recovering/Resolving]
  - Bladder dysfunction [Recovering/Resolving]
  - Muscle spasms [Recovering/Resolving]
  - Gait disturbance [Unknown]
  - Balance disorder [Unknown]
  - Feeling abnormal [Recovering/Resolving]
  - Anxiety [Unknown]
  - Alopecia [Unknown]
  - Migraine [Recovering/Resolving]
  - Stress [Recovering/Resolving]
  - Hypoaesthesia [Recovering/Resolving]
  - Pain [Unknown]
  - Dizziness [Unknown]
  - Sleep disorder [Unknown]
  - Tunnel vision [Recovering/Resolving]
  - Nausea [Recovering/Resolving]
  - Confusional state [Unknown]

NARRATIVE: CASE EVENT DATE: 20130328
